FAERS Safety Report 12627151 (Version 1)
Quarter: 2016Q3

REPORT INFORMATION
  Report Type: Spontaneous
  Country: NP (occurrence: NP)
  Receive Date: 20160805
  Receipt Date: 20160805
  Transmission Date: 20161109
  Serious: Yes (Other)
  Sender: FDA-Public Use
  Company Number: NP-UNICHEM LABORATORIES LIMITED-UCM201608-000169

PATIENT
  Age: 38 Year
  Sex: Female

DRUGS (1)
  1. LOSARTAN. [Suspect]
     Active Substance: LOSARTAN
     Route: 048

REACTIONS (2)
  - Noninfectious peritonitis [Recovered/Resolved]
  - Drug hypersensitivity [Recovered/Resolved]
